FAERS Safety Report 5213134-9 (Version None)
Quarter: 2007Q1

REPORT INFORMATION
  Report Type: 
  Country: None (occurrence: None)
  Receive Date: 20070118
  Receipt Date: 20070118
  Transmission Date: 20070707
  Serious: Yes (Hospitalization, Disabling)
  Sender: FDA-Public Use
  Company Number: None

PATIENT
  Sex: Female

DRUGS (2)
  1. ALIMTA [Suspect]
     Indication: OVARIAN CANCER
     Dosage: 785  D 1 Q21  IV
     Route: 042
     Dates: start: 20061219, end: 20061219
  2. TARCEVA [Suspect]
     Indication: OVARIAN CANCER
     Dosage: 150MG  D 2-16 Q21  P.O.
     Route: 048
     Dates: start: 20061220, end: 20070103

REACTIONS (2)
  - BLINDNESS TRANSIENT [None]
  - VISION BLURRED [None]
